FAERS Safety Report 9176981 (Version 1)
Quarter: 2013Q1

REPORT INFORMATION
  Report Type: Spontaneous
  Country: US (occurrence: None)
  Receive Date: 20130320
  Receipt Date: 20130320
  Transmission Date: 20140127
  Serious: Yes (Other)
  Sender: FDA-Public Use
  Company Number: None

PATIENT
  Sex: 0

DRUGS (3)
  1. RISPERIDOL [Suspect]
  2. BENADRYL [Concomitant]
  3. COGENTIN [Concomitant]

REACTIONS (3)
  - Anger [None]
  - Paranoia [None]
  - Homicidal ideation [None]
